FAERS Safety Report 5837969-4 (Version None)
Quarter: 2008Q3

REPORT INFORMATION
  Report Type: 
  Country: None (occurrence: None)
  Receive Date: 20080808
  Receipt Date: 20080102
  Transmission Date: 20090109
  Serious: No
  Sender: FDA-Public Use
  Company Number: A0701027A

PATIENT
  Age: 51 Year
  Sex: Female

DRUGS (3)
  1. PAXIL [Suspect]
     Indication: DEPRESSION
     Route: 048
     Dates: start: 19920101
  2. KLONOPIN [Concomitant]
  3. ESTRADIOL [Concomitant]

REACTIONS (2)
  - DRUG ADMINISTRATION ERROR [None]
  - PARAESTHESIA [None]
